FAERS Safety Report 5976754-X (Version None)
Quarter: 2008Q4

REPORT INFORMATION
  Report Type: 
  Country: None (occurrence: None)
  Receive Date: 20081201
  Receipt Date: 20081201
  Transmission Date: 20090506
  Serious: Yes (Hospitalization)
  Sender: FDA-Public Use
  Company Number: None

PATIENT
  Sex: Male
  Weight: 70.2 kg

DRUGS (1)
  1. DAPTOMYCIN [Suspect]
     Indication: STREPTOCOCCAL BACTERAEMIA
     Dosage: 6 MG/KG Q24 HOURS IVPB
     Route: 042
     Dates: start: 20081026, end: 20081108

REACTIONS (2)
  - RENAL FAILURE ACUTE [None]
  - RHABDOMYOLYSIS [None]
